FAERS Safety Report 15178162 (Version 2)
Quarter: 2018Q3

REPORT INFORMATION
  Report Type: Spontaneous
  Country: GB (occurrence: GB)
  Receive Date: 20180721
  Receipt Date: 20180804
  Transmission Date: 20181010
  Serious: No
  Sender: FDA-Public Use
  Company Number: GB-AUROBINDO-AUR-APL-2018-034217

PATIENT

DRUGS (9)
  1. SOFOSBUVIR [Suspect]
     Active Substance: SOFOSBUVIR
     Indication: HEPATITIS C
  2. SOFOSBUVIR [Suspect]
     Active Substance: SOFOSBUVIR
     Indication: CHRONIC HEPATITIS C
  3. RIBAVIRIN CAPSULE [Suspect]
     Active Substance: RIBAVIRIN
     Indication: HEPATIC CIRRHOSIS
  4. INTERFERON [Suspect]
     Active Substance: INTERFERON
     Indication: HEPATIC CIRRHOSIS
  5. RIBAVIRIN CAPSULE [Suspect]
     Active Substance: RIBAVIRIN
     Indication: CHRONIC HEPATITIS C
  6. RIBAVIRIN CAPSULE [Suspect]
     Active Substance: RIBAVIRIN
     Indication: HEPATITIS C
     Dosage: UNK
     Route: 048
  7. SOFOSBUVIR [Suspect]
     Active Substance: SOFOSBUVIR
     Indication: HEPATIC CIRRHOSIS
     Dosage: UNK
     Route: 065
  8. INTERFERON [Suspect]
     Active Substance: INTERFERON
     Indication: CHRONIC HEPATITIS C
  9. INTERFERON [Suspect]
     Active Substance: INTERFERON
     Indication: HEPATITIS C
     Dosage: UNK
     Route: 065

REACTIONS (2)
  - Adverse event [Unknown]
  - Treatment failure [Unknown]
